FAERS Safety Report 25577105 (Version 1)
Quarter: 2025Q3

REPORT INFORMATION
  Report Type: Spontaneous
  Country: KR (occurrence: KR)
  Receive Date: 20250718
  Receipt Date: 20250718
  Transmission Date: 20251020
  Serious: Yes (Other)
  Sender: KOWA PHARM
  Company Number: KR-KOWA-25JP001262AA

PATIENT
  Age: 7 Decade
  Sex: Female

DRUGS (10)
  1. EZETIMIBE\PITAVASTATIN CALCIUM [Suspect]
     Active Substance: EZETIMIBE\PITAVASTATIN CALCIUM
     Indication: Hyperlipidaemia
     Dosage: UNK UNK, QD
     Route: 048
     Dates: start: 202505
  2. KANARB [Concomitant]
     Indication: Product used for unknown indication
     Dosage: 15 MG, QD
     Route: 048
     Dates: end: 202505
  3. KANARB [Concomitant]
     Dosage: 15 MG, QD
     Route: 048
     Dates: start: 202505
  4. BORYUNGBIO ASTRIX [Concomitant]
     Indication: Product used for unknown indication
     Dosage: 100 MG, QD
     Route: 048
     Dates: end: 202505
  5. BORYUNGBIO ASTRIX [Concomitant]
     Dosage: 100 MG, QD
     Route: 048
     Dates: start: 202505
  6. VICAFEROL PLUS [Concomitant]
     Indication: Product used for unknown indication
     Dosage: UNK, QD
     Route: 048
     Dates: end: 202505
  7. VICAFEROL PLUS [Concomitant]
     Dosage: UNK, QD
     Route: 048
     Dates: start: 202505
  8. YUHAN METFORMIN XR [Concomitant]
     Indication: Product used for unknown indication
     Dosage: 500 MG, QD
     Route: 048
     Dates: end: 202505
  9. YUHAN METFORMIN XR [Concomitant]
     Dosage: 500 MG, QD
     Route: 048
     Dates: start: 202505
  10. ZOLPIDEM TARTRATE [Concomitant]
     Active Substance: ZOLPIDEM TARTRATE
     Indication: Product used for unknown indication
     Route: 048

REACTIONS (3)
  - Loss of consciousness [Unknown]
  - Syncope [Unknown]
  - Dizziness [Unknown]

NARRATIVE: CASE EVENT DATE: 20250501
